FAERS Safety Report 11064293 (Version 1)
Quarter: 2015Q2

REPORT INFORMATION
  Report Type: Spontaneous
  Country: JP (occurrence: JP)
  Receive Date: 20150424
  Receipt Date: 20150424
  Transmission Date: 20150821
  Serious: Yes (Death)
  Sender: FDA-Public Use
  Company Number: JP-MALLINCKRODT-T201502169

PATIENT
  Age: 63 Year
  Sex: Female

DRUGS (22)
  1. METHADONE [Suspect]
     Active Substance: METHADONE HYDROCHLORIDE
     Indication: CANCER PAIN
     Dosage: 10 MG (30 MG DAILY DOSE)
     Route: 048
     Dates: start: 20141014, end: 20141020
  2. METHADONE [Suspect]
     Active Substance: METHADONE HYDROCHLORIDE
     Dosage: 40MG, (120MG DAILY DOSE)
     Route: 048
     Dates: start: 20141123, end: 20141209
  3. OXYFAST [Concomitant]
     Active Substance: OXYCODONE
     Dosage: 10MG, P.R.N.
     Route: 051
     Dates: start: 20141013, end: 20141013
  4. REMERON [Concomitant]
     Active Substance: MIRTAZAPINE
     Dosage: 30MG
     Route: 048
     Dates: end: 20141209
  5. ABSTRAL [Concomitant]
     Active Substance: FENTANYL CITRATE
     Dosage: 100MCG
     Route: 048
     Dates: start: 20141022, end: 20141023
  6. XYLOCAINE [Concomitant]
     Active Substance: LIDOCAINE HYDROCHLORIDE
     Dosage: 384MG
     Route: 051
     Dates: start: 20141206, end: 20141211
  7. NEXIUM [Concomitant]
     Active Substance: ESOMEPRAZOLE MAGNESIUM
     Dosage: 20MG
     Route: 048
     Dates: end: 20141209
  8. METHADONE [Suspect]
     Active Substance: METHADONE HYDROCHLORIDE
     Dosage: 15 MG ( 45 MG DAILY DOSE)
     Route: 048
     Dates: start: 20141020, end: 20141030
  9. METHADONE [Suspect]
     Active Substance: METHADONE HYDROCHLORIDE
     Dosage: 20MG, (60MG DAILY DOSE)
     Route: 048
     Dates: start: 20141030, end: 20141105
  10. METHADONE [Suspect]
     Active Substance: METHADONE HYDROCHLORIDE
     Dosage: 30MG, (90MG DAILY DOSE)
     Route: 048
     Dates: start: 20141111, end: 20141123
  11. MORPHINE HCL [Concomitant]
     Active Substance: MORPHINE HYDROCHLORIDE
     Dosage: 30MG
     Route: 048
     Dates: start: 20141023, end: 20141209
  12. VOLTAREN [Concomitant]
     Active Substance: DICLOFENAC SODIUM
     Dosage: 75MG
     Route: 048
     Dates: start: 20141206, end: 20141209
  13. LYRICA [Concomitant]
     Active Substance: PREGABALIN
     Dosage: 300MG
     Route: 048
     Dates: start: 20141105, end: 20141209
  14. METHADONE [Suspect]
     Active Substance: METHADONE HYDROCHLORIDE
     Dosage: 25MG, (75MG DAILY DOSE)
     Route: 048
     Dates: start: 20141105, end: 20141111
  15. MAGMITT [Concomitant]
     Active Substance: MAGNESIUM OXIDE
     Dosage: 660MG
     Route: 048
     Dates: end: 20141209
  16. CALONAL [Concomitant]
     Active Substance: ACETAMINOPHEN
     Dosage: 2400MG
     Route: 048
     Dates: start: 20141101, end: 20141209
  17. BETAMETHASON [Concomitant]
     Dosage: 1MG
     Route: 048
     Dates: end: 20141209
  18. PICOSULFATE [Concomitant]
     Active Substance: SODIUM PICOSULFATE
     Dosage: 2.5MG
     Route: 048
     Dates: start: 20141007, end: 20141209
  19. OXINORM [Concomitant]
     Active Substance: OXYCODONE HYDROCHLORIDE
     Dosage: 20MG, P.R.N.
     Route: 048
     Dates: start: 20141014
  20. MORPHINE HCL [Concomitant]
     Active Substance: MORPHINE HYDROCHLORIDE
     Dosage: 30MG, P.R.N.
     Route: 048
     Dates: start: 20141024
  21. CELECOX [Concomitant]
     Active Substance: CELECOXIB
     Dosage: 200MG
     Route: 048
     Dates: end: 20141206
  22. LYRICA [Concomitant]
     Active Substance: PREGABALIN
     Dosage: 150MG
     Route: 048
     Dates: end: 20141104

REACTIONS (1)
  - Lung neoplasm malignant [Fatal]
